FAERS Safety Report 4481744-2 (Version None)
Quarter: 2004Q4

REPORT INFORMATION
  Report Type: 
  Country: None (occurrence: None)
  Receive Date: 20041021
  Receipt Date: 20041011
  Transmission Date: 20050328
  Serious: Yes (Life-Threatening, Disabling)
  Sender: FDA-Public Use
  Company Number: US-MERCK-0410USA01557

PATIENT
  Age: 40 Year
  Sex: Female

DRUGS (9)
  1. VIOXX [Suspect]
     Indication: BACK PAIN
     Route: 048
     Dates: end: 20040901
  2. MEGACE [Concomitant]
     Route: 065
  3. ALLEGRA [Concomitant]
     Route: 065
  4. NASACORT [Concomitant]
     Route: 065
  5. MENEST [Concomitant]
     Route: 065
  6. VALIUM [Concomitant]
     Route: 065
  7. TENORMIN [Concomitant]
     Route: 065
  8. PERCOCET [Concomitant]
     Route: 065
  9. OXYCONTIN [Concomitant]
     Route: 065

REACTIONS (7)
  - ANGINA PECTORIS [None]
  - BLOOD PRESSURE INADEQUATELY CONTROLLED [None]
  - BLOOD PRESSURE INCREASED [None]
  - CARDIAC FLUTTER [None]
  - JOINT SWELLING [None]
  - TACHYCARDIA [None]
  - WEIGHT INCREASED [None]
